FAERS Safety Report 19278622 (Version 1)
Quarter: 2021Q2

REPORT INFORMATION
  Report Type: Spontaneous
  Country: US (occurrence: US)
  Receive Date: 20210520
  Receipt Date: 20210520
  Transmission Date: 20210717
  Serious: Yes (Hospitalization)
  Sender: FDA-Public Use
  Company Number: None

PATIENT
  Age: 13 Year
  Sex: Female
  Weight: 85.5 kg

DRUGS (3)
  1. LATUDA [Suspect]
     Active Substance: LURASIDONE HYDROCHLORIDE
     Indication: BIPOLAR DISORDER
     Dosage: ?          QUANTITY:30 TABLET(S);?
     Route: 048
     Dates: start: 20210413, end: 20210520
  2. LEVOTHYROXINE. [Concomitant]
     Active Substance: LEVOTHYROXINE
  3. DEPO?PROVERA [Concomitant]
     Active Substance: MEDROXYPROGESTERONE ACETATE

REACTIONS (11)
  - Anxiety [None]
  - Panic attack [None]
  - Behaviour disorder [None]
  - Decreased appetite [None]
  - Therapy change [None]
  - Suicidal ideation [None]
  - Muscle twitching [None]
  - Aggression [None]
  - Circadian rhythm sleep disorder [None]
  - Body temperature fluctuation [None]
  - Depression [None]

NARRATIVE: CASE EVENT DATE: 20210401
